FAERS Safety Report 11701824 (Version 1)
Quarter: 2015Q4

REPORT INFORMATION
  Report Type: Spontaneous
  Country: US (occurrence: US)
  Receive Date: 20151105
  Receipt Date: 20151105
  Transmission Date: 20160304
  Serious: No
  Sender: FDA-Public Use
  Company Number: US-MALLINCKRODT-T201504540

PATIENT
  Sex: Female
  Weight: 77 kg

DRUGS (9)
  1. LEVOTHYROXINE. [Concomitant]
     Active Substance: LEVOTHYROXINE
  2. ESCITALOPRAM [Concomitant]
     Active Substance: ESCITALOPRAM OXALATE
  3. CLARITIN [Concomitant]
     Active Substance: LORATADINE
  4. CYCLOBENZAPRINE [Concomitant]
     Active Substance: CYCLOBENZAPRINE
     Dosage: PRN
  5. ESTRADIOL. [Concomitant]
     Active Substance: ESTRADIOL
  6. FENTANYL TRANSDERMAL SYSTEM [Suspect]
     Active Substance: FENTANYL
     Indication: ANALGESIC THERAPY
     Dosage: 50 MCG/HR, Q72H
     Route: 062
     Dates: start: 2011
  7. XANAX [Concomitant]
     Active Substance: ALPRAZOLAM
     Dosage: 0.5 MG QHS
     Route: 048
  8. MELATONIN [Concomitant]
     Active Substance: MELATONIN
  9. BUMETANIDE. [Concomitant]
     Active Substance: BUMETANIDE
     Dosage: PRN

REACTIONS (6)
  - Drug withdrawal syndrome [Not Recovered/Not Resolved]
  - Fatigue [Not Recovered/Not Resolved]
  - Product adhesion issue [Unknown]
  - Drug effect decreased [Not Recovered/Not Resolved]
  - Wrong technique in product usage process [Not Recovered/Not Resolved]
  - Drug dependence [Not Recovered/Not Resolved]
